FAERS Safety Report 7703234-3 (Version None)
Quarter: 2011Q3

REPORT INFORMATION
  Report Type: 
  Country: None (occurrence: None)
  Receive Date: 20110823
  Receipt Date: 20110809
  Transmission Date: 20111222
  Serious: No
  Sender: FDA-Public Use
  Company Number: US-B.I. PHARMACEUTICALS,INC./RIDGEFIELD-2011-BP-19593BP

PATIENT
  Age: 65 Year
  Sex: Male

DRUGS (16)
  1. ALLOPURINOL [Concomitant]
     Indication: GOUT
     Dosage: 150 MG
     Route: 048
  2. ATACAND [Concomitant]
     Indication: CARDIAC FAILURE CONGESTIVE
     Route: 048
  3. MULTI-VITAMINS [Concomitant]
     Indication: SUPPLEMENTATION THERAPY
     Route: 048
  4. NIACIN [Concomitant]
     Indication: SUPPLEMENTATION THERAPY
     Dosage: 3000 MG
     Route: 048
  5. COQ10 [Concomitant]
     Indication: SUPPLEMENTATION THERAPY
     Dosage: 100 MG
     Route: 048
  6. PRADAXA [Suspect]
     Indication: ATRIAL FIBRILLATION
     Dosage: 300 MG
     Route: 048
     Dates: start: 20110727
  7. CARVEDILOL [Concomitant]
     Indication: CARDIAC FAILURE CONGESTIVE
     Dosage: 75 MG
     Route: 048
  8. AMIODARONE HCL [Concomitant]
     Indication: ATRIAL FIBRILLATION
     Dosage: 200 MG
     Route: 048
  9. TRICOR [Concomitant]
     Indication: BLOOD CHOLESTEROL INCREASED
     Dosage: 48 MG
     Route: 048
  10. AMLODIPINE [Concomitant]
     Indication: HYPERTENSION
     Dosage: 10 MG
     Route: 048
  11. JANUVIA [Concomitant]
     Indication: DIABETES MELLITUS
     Dosage: 100 MG
     Route: 048
  12. METFORMIN HCL [Concomitant]
     Indication: DIABETES MELLITUS
     Dosage: 2000 MG
     Route: 048
  13. ASPIRIN [Concomitant]
     Indication: PROPHYLAXIS
     Dosage: 81 MG
     Route: 048
  14. FUROSEMIDE [Concomitant]
     Indication: HYPERTENSION
     Dosage: 40 MG
     Route: 048
  15. VITAMIN B1 TAB [Concomitant]
     Indication: SUPPLEMENTATION THERAPY
     Dosage: 250 MG
     Route: 048
  16. FOLIC ACID [Concomitant]
     Indication: SUPPLEMENTATION THERAPY
     Dosage: 1 MG
     Route: 048

REACTIONS (1)
  - FATIGUE [None]
